FAERS Safety Report 8602711-0 (Version None)
Quarter: 2012Q3

REPORT INFORMATION
  Report Type: 
  Country: None (occurrence: None)
  Receive Date: 20120817
  Receipt Date: 20120802
  Transmission Date: 20120928
  Serious: Yes (Hospitalization)
  Sender: FDA-Public Use
  Company Number: GB-WATSON-2012-14351

PATIENT
  Age: 79 Year
  Sex: Female

DRUGS (1)
  1. GLIMEPIRIDE [Suspect]
     Indication: DIABETES MELLITUS
     Dosage: 1 MG, DAILY
     Route: 065
     Dates: start: 20111201

REACTIONS (1)
  - MYALGIA [None]
